FAERS Safety Report 8276514-3 (Version None)
Quarter: 2012Q2

REPORT INFORMATION
  Report Type: 
  Country: None (occurrence: None)
  Receive Date: 20120412
  Receipt Date: 20120110
  Transmission Date: 20120825
  Serious: No
  Sender: FDA-Public Use
  Company Number: US-GLAXOSMITHKLINE-A0960797A

PATIENT
  Age: 63 Year
  Sex: Male

DRUGS (11)
  1. LISINOPRIL [Concomitant]
     Dosage: 10MG AT NIGHT
  2. ZYRTEC [Concomitant]
  3. JALYN [Suspect]
     Indication: PROSTATIC SPECIFIC ANTIGEN INCREASED
     Dosage: 1CAP AT NIGHT
     Route: 048
     Dates: start: 20110601
  4. PREVACID [Concomitant]
  5. FLOMAX [Concomitant]
     Dosage: .4MG IN THE MORNING
  6. VITAMIN B COMPLEX CAP [Concomitant]
  7. ALLOPURINOL [Concomitant]
     Dosage: 300MG PER DAY
  8. SIMVASTATIN [Concomitant]
     Dosage: 10MG AT NIGHT
  9. ZOLPIDEM [Concomitant]
     Dosage: 5MG AS REQUIRED
  10. VITAMIN TAB [Concomitant]
  11. OMEPRAZOLE [Concomitant]
     Dosage: 40MG IN THE MORNING

REACTIONS (5)
  - LIBIDO DECREASED [None]
  - ERECTILE DYSFUNCTION [None]
  - IMPAIRED HEALING [None]
  - SKIN WRINKLING [None]
  - INCREASED TENDENCY TO BRUISE [None]
